FAERS Safety Report 4754986-6 (Version None)
Quarter: 2005Q3

REPORT INFORMATION
  Report Type: 
  Country: None (occurrence: None)
  Receive Date: 20050825
  Receipt Date: 20050812
  Transmission Date: 20060218
  Serious: Yes (Death)
  Sender: FDA-Public Use
  Company Number: S05-FRA-03006-01

PATIENT
  Age: 24 Year
  Sex: Female

DRUGS (5)
  1. CITALOPRAM HYDROBROMIDE [Suspect]
     Indication: SCHIZOAFFECTIVE DISORDER
     Dosage: 20 MG QD PO
     Route: 048
     Dates: start: 20040722
  2. RISPERDAL [Suspect]
     Indication: SCHIZOAFFECTIVE DISORDER
     Dosage: 50 MG IM
     Route: 030
     Dates: start: 20040802, end: 20041014
  3. LEPTICUR (TROPATEPINE HYDROCHLORIDE) [Concomitant]
  4. STILNOX (ZOLPIDEM) [Concomitant]
  5. RIVOTRIL (CLONAZEPAM) [Concomitant]

REACTIONS (2)
  - COMPLETED SUICIDE [None]
  - DRUG ABUSER [None]
